FAERS Safety Report 7795003-3 (Version None)
Quarter: 2011Q4

REPORT INFORMATION
  Report Type: 
  Country: None (occurrence: None)
  Receive Date: 20111004
  Receipt Date: 20110930
  Transmission Date: 20120403
  Serious: Yes (Hospitalization, Other)
  Sender: FDA-Public Use
  Company Number: PHHY2011US39692

PATIENT
  Sex: Female

DRUGS (1)
  1. EXJADE [Suspect]
     Indication: NEOPLASM
     Dosage: 500 MG, QD
     Route: 048

REACTIONS (4)
  - RASH [None]
  - DIARRHOEA [None]
  - SKULL FRACTURE [None]
  - ACCIDENT [None]
